FAERS Safety Report 6397595-8 (Version None)
Quarter: 2009Q4

REPORT INFORMATION
  Report Type: 
  Country: None (occurrence: None)
  Receive Date: 20091012
  Receipt Date: 20090928
  Transmission Date: 20100525
  Serious: Yes (Disabling, Other)
  Sender: FDA-Public Use
  Company Number: FR-MYLANLABS-2009S1016889

PATIENT
  Age: 18 Year
  Sex: Male

DRUGS (4)
  1. CISPLATIN [Suspect]
     Indication: BONE SARCOMA
     Route: 042
     Dates: start: 20090824, end: 20090824
  2. METHOTREXATE [Suspect]
     Dates: start: 20090803
  3. METHOTREXATE [Suspect]
     Dates: start: 20090810
  4. METHOTREXATE [Suspect]
     Dates: start: 20090817

REACTIONS (2)
  - AUDIOGRAM ABNORMAL [None]
  - HEARING IMPAIRED [None]
